FAERS Safety Report 6020632-7 (Version None)
Quarter: 2008Q4

REPORT INFORMATION
  Report Type: 
  Country: None (occurrence: None)
  Receive Date: 20081224
  Receipt Date: 20081224
  Transmission Date: 20090506
  Serious: Yes (Life-Threatening, Disabling, Other)
  Sender: FDA-Public Use
  Company Number: None

PATIENT
  Sex: Female
  Weight: 110 kg

DRUGS (4)
  1. ZAROXOLYN [Suspect]
     Indication: ASCITES
     Dosage: 2 1/2 MG ONCE A DAY BY MOUTH
     Route: 048
     Dates: start: 20081211, end: 20081212
  2. ZAROXOLYN [Suspect]
     Indication: CARDIAC FAILURE CONGESTIVE
     Dosage: 2 1/2 MG ONCE A DAY BY MOUTH
     Route: 048
     Dates: start: 20081211, end: 20081212
  3. ZAROXOLYN [Suspect]
     Indication: OEDEMA
     Dosage: 2 1/2 MG ONCE A DAY BY MOUTH
     Route: 048
     Dates: start: 20081211, end: 20081212
  4. INFANT FORMULA (PB NUTRITIONAL LLC [Suspect]
     Indication: NUTRITIONAL SUPPORT
     Dosage: 1/2 MEASURE ONCE A DAY BY MOUTH
     Route: 048
     Dates: start: 20081121, end: 20081201

REACTIONS (11)
  - ARRHYTHMIA [None]
  - ASTHENIA [None]
  - BLOOD PRESSURE DECREASED [None]
  - BODY TEMPERATURE DECREASED [None]
  - DRUG TOXICITY [None]
  - HEADACHE [None]
  - MUSCLE SPASMS [None]
  - NAUSEA [None]
  - SHOCK [None]
  - TINNITUS [None]
  - TREMOR [None]
